FAERS Safety Report 12876165 (Version 1)
Quarter: 2016Q4

REPORT INFORMATION
  Report Type: Spontaneous
  Country: US (occurrence: US)
  Receive Date: 20161024
  Receipt Date: 20161024
  Transmission Date: 20170207
  Serious: Yes (Hospitalization)
  Sender: FDA-Public Use
  Company Number: US-TAIHO ONCOLOGY INC-EU-2016-02383

PATIENT
  Sex: Female

DRUGS (17)
  1. LONSURF [Suspect]
     Active Substance: TIPIRACIL HYDROCHLORIDE\TRIFLURIDINE
     Indication: COLON CANCER
     Route: 048
     Dates: start: 20160707, end: 2016
  2. SALBUTAMOL [Concomitant]
     Active Substance: ALBUTEROL
     Dosage: NI
  3. ZANTAC [Concomitant]
     Active Substance: RANITIDINE HYDROCHLORIDE
     Dosage: NI
  4. LEVOTHYROXINE. [Concomitant]
     Active Substance: LEVOTHYROXINE
     Dosage: NI
  5. BUDESONIDE. [Concomitant]
     Active Substance: BUDESONIDE
     Dosage: NI
  6. NEXIUM [Concomitant]
     Active Substance: ESOMEPRAZOLE MAGNESIUM
     Dosage: NI
  7. LISINOPRIL. [Concomitant]
     Active Substance: LISINOPRIL
     Dosage: NI
  8. CYMBALTA [Concomitant]
     Active Substance: DULOXETINE HYDROCHLORIDE
     Dosage: NI
  9. CARAFATE [Concomitant]
     Active Substance: SUCRALFATE
     Dosage: NI
  10. AMLODIPINE [Concomitant]
     Active Substance: AMLODIPINE BESYLATE
     Dosage: NI
  11. METOPROLOL. [Concomitant]
     Active Substance: METOPROLOL
     Dosage: NI
  12. XANAX [Concomitant]
     Active Substance: ALPRAZOLAM
     Dosage: NI
  13. CLONIDINE. [Concomitant]
     Active Substance: CLONIDINE
     Dosage: NI
  14. PREDNISONE. [Concomitant]
     Active Substance: PREDNISONE
     Dosage: NI
  15. FENTANYL. [Concomitant]
     Active Substance: FENTANYL
     Dosage: NI
  16. IPRATROPIUM [Concomitant]
     Active Substance: IPRATROPIUM
     Dosage: NI
  17. DILAUDID [Concomitant]
     Active Substance: HYDROMORPHONE HYDROCHLORIDE
     Dosage: NI

REACTIONS (3)
  - Pneumonia [Unknown]
  - Platelet count decreased [Unknown]
  - Thrombosis [Unknown]

NARRATIVE: CASE EVENT DATE: 2016
